FAERS Safety Report 4752189-2 (Version None)
Quarter: 2005Q3

REPORT INFORMATION
  Report Type: 
  Country: None (occurrence: None)
  Receive Date: 20050825
  Receipt Date: 20050818
  Transmission Date: 20060218
  Serious: Yes (Life-Threatening, Hospitalization)
  Sender: FDA-Public Use
  Company Number: PHEH2005US09214

PATIENT
  Age: 76 Year
  Sex: Female

DRUGS (11)
  1. LOTREL [Suspect]
     Indication: HYPERTENSION
     Dosage: 5/20MG , QD
     Route: 048
     Dates: start: 20050808, end: 20050811
  2. PEPCID [Concomitant]
  3. OXAZEPAM [Concomitant]
  4. ALEVE [Concomitant]
     Dosage: UNK, TID
  5. LESCOL [Concomitant]
     Dosage: UNK, QD
  6. TAMOXIFEN CITRATE [Concomitant]
     Dosage: 20MG, QD
  7. QUININE SULFATE [Concomitant]
     Dosage: 260MG, QD
  8. ASPIRIN [Concomitant]
     Dosage: 81MG, QD
  9. CALTRATE [Concomitant]
     Dosage: 600MG, QD
  10. VITAMIN E [Concomitant]
     Dosage: 400 UNITS, QD
  11. THERAGEN [Concomitant]
     Dosage: UNK, QD

REACTIONS (18)
  - ANAPHYLACTIC SHOCK [None]
  - ANGIONEUROTIC OEDEMA [None]
  - BLISTER [None]
  - BRONCHOSPASM [None]
  - DERMATITIS BULLOUS [None]
  - DYSPHAGIA [None]
  - HAEMATOCRIT DECREASED [None]
  - HAEMOGLOBIN DECREASED [None]
  - PRURITUS [None]
  - PYREXIA [None]
  - RASH GENERALISED [None]
  - RASH MACULO-PAPULAR [None]
  - RENAL FAILURE [None]
  - SPEECH DISORDER [None]
  - SWELLING [None]
  - SWELLING FACE [None]
  - SWOLLEN TONGUE [None]
  - TACHYCARDIA [None]
